FAERS Safety Report 4893998-9 (Version None)
Quarter: 2006Q1

REPORT INFORMATION
  Report Type: 
  Country: None (occurrence: None)
  Receive Date: 20060127
  Receipt Date: 20060124
  Transmission Date: 20060701
  Serious: Yes (Death)
  Sender: FDA-Public Use
  Company Number: US-MERCK-0601USA02860

PATIENT
  Sex: Female

DRUGS (3)
  1. VIOXX [Suspect]
     Route: 048
     Dates: start: 20011201, end: 20040101
  2. BEXTRA [Suspect]
     Route: 048
     Dates: start: 20011201, end: 20040101
  3. CELEBREX [Suspect]
     Route: 048
     Dates: start: 20011201, end: 20040101

REACTIONS (1)
  - MYOCARDIAL INFARCTION [None]
